FAERS Safety Report 24172169 (Version 1)
Quarter: 2024Q3

REPORT INFORMATION
  Report Type: Spontaneous
  Country: MX (occurrence: MX)
  Receive Date: 20240805
  Receipt Date: 20240805
  Transmission Date: 20241016
  Serious: Yes (Other)
  Sender: CHEPLAPHARM
  Company Number: MX-ELI_LILLY_AND_COMPANY-MX202407005596

PATIENT
  Age: 50 Year
  Sex: Female
  Weight: 56 kg

DRUGS (2)
  1. OLANZAPINE [Suspect]
     Active Substance: OLANZAPINE
     Indication: Product used for unknown indication
     Dosage: 5 MG, DAILY (THEN THE DOSE DECREASED TO HALF PILL DAILY), ONGOING?DAILY DOSE: 5 MILLIGRAM
     Route: 048
     Dates: start: 2009
  2. OLANZAPINE [Suspect]
     Active Substance: OLANZAPINE
     Indication: Product used for unknown indication
     Dosage: 10 MG, DAILY?DAILY DOSE: 10 MILLIGRAM
     Route: 048

REACTIONS (2)
  - Hallucination [Recovering/Resolving]
  - Wrong technique in product usage process [Unknown]
